FAERS Safety Report 19193624 (Version 1)
Quarter: 2021Q2

REPORT INFORMATION
  Report Type: Spontaneous
  Country: US (occurrence: US)
  Receive Date: 20210428
  Receipt Date: 20210428
  Transmission Date: 20210717
  Serious: No
  Sender: FDA-Public Use
  Company Number: None

PATIENT
  Age: 61 Year
  Sex: Female

DRUGS (2)
  1. HUMIRA [Suspect]
     Active Substance: ADALIMUMAB
     Indication: PSORIATIC ARTHROPATHY
  2. HUMIRA [Suspect]
     Active Substance: ADALIMUMAB
     Indication: PSORIASIS
     Dosage: INJECT 80MG (2 SYRINGES) ON DAY 1, 40MG (1 SYRINGE) SUBCUTANEOUSLY DAY 8, THEN 40MG EVERY OTHER WEEK
     Route: 058
     Dates: start: 202103

REACTIONS (3)
  - Migraine [None]
  - Chest pain [None]
  - Musculoskeletal disorder [None]
